FAERS Safety Report 7934907-5 (Version None)
Quarter: 2011Q4

REPORT INFORMATION
  Report Type: 
  Country: None (occurrence: None)
  Receive Date: 20111122
  Receipt Date: 20111118
  Transmission Date: 20120403
  Serious: Yes (Other)
  Sender: FDA-Public Use
  Company Number: GB-PFIZER INC-2011273927

PATIENT
  Sex: Female

DRUGS (3)
  1. AMLODIPINE [Concomitant]
     Indication: HYPERTENSION
     Dosage: 10 MG, 1X/DAY
     Route: 048
  2. MIRTAZAPINE [Suspect]
     Route: 048
  3. SERTRALINE HYDROCHLORIDE [Suspect]
     Route: 048

REACTIONS (1)
  - PAIN IN EXTREMITY [None]
